FAERS Safety Report 21138051 (Version 4)
Quarter: 2022Q3

REPORT INFORMATION
  Report Type: Report from Study
  Country: KR (occurrence: KR)
  Receive Date: 20220727
  Receipt Date: 20220803
  Transmission Date: 20221026
  Serious: Yes (Death, Hospitalization, Other)
  Sender: FDA-Public Use
  Company Number: KP-GLAXOSMITHKLINE-KP2022GSK110880

PATIENT

DRUGS (11)
  1. FLUTICASONE FUROATE\UMECLIDINIUM BROMIDE\VILANTEROL TRIFENATATE [Suspect]
     Active Substance: FLUTICASONE FUROATE\UMECLIDINIUM BROMIDE\VILANTEROL TRIFENATATE
     Indication: Chronic obstructive pulmonary disease
     Dosage: QD
     Route: 055
     Dates: start: 20220119, end: 20220211
  2. PREDNISOLONE [Concomitant]
     Active Substance: PREDNISOLONE
     Indication: Chronic obstructive pulmonary disease
     Dosage: 1 DF, QD
     Route: 048
     Dates: start: 20131127
  3. PRANLUKAST [Concomitant]
     Active Substance: PRANLUKAST
     Indication: Product used for unknown indication
     Dosage: 225 MG, BID
     Route: 048
     Dates: start: 20050826
  4. DOXOFYLLINE [Concomitant]
     Active Substance: DOXOFYLLINE
     Indication: Chronic obstructive pulmonary disease
     Dosage: 400 MG, BID
     Route: 048
     Dates: start: 20060720
  5. SYNATURA [Concomitant]
     Indication: Product used for unknown indication
     Dosage: 15 ML, TID
     Route: 048
     Dates: start: 20160509
  6. CARBAMAZEPINE [Concomitant]
     Active Substance: CARBAMAZEPINE
     Indication: Product used for unknown indication
     Dosage: 2 DF, QD
     Route: 048
     Dates: start: 20141002
  7. RIVOTRIL [Concomitant]
     Active Substance: CLONAZEPAM
     Indication: Product used for unknown indication
     Dosage: 2 DF, QD
     Route: 048
     Dates: start: 20141002
  8. OLDECA [Concomitant]
     Indication: Hypertension
     Dosage: 1 DF, QD
     Route: 048
     Dates: start: 20140717
  9. LIPITOR [Concomitant]
     Active Substance: ATORVASTATIN CALCIUM
     Indication: Product used for unknown indication
     Dosage: 10 MG
     Route: 048
     Dates: start: 20160621
  10. ISOSORBIDE MONONITRATE [Concomitant]
     Active Substance: ISOSORBIDE MONONITRATE
     Indication: Prinzmetal angina
     Dosage: 60 MG, QD
     Route: 048
     Dates: start: 20140717
  11. ASPIRIN [Concomitant]
     Active Substance: ASPIRIN
     Indication: Prinzmetal angina
     Dosage: 1 DF, QD
     Dates: start: 20090508

REACTIONS (2)
  - Pneumonia [Fatal]
  - Acute kidney injury [Fatal]

NARRATIVE: CASE EVENT DATE: 20220624
